APPROVED DRUG PRODUCT: TRIMPEX
Active Ingredient: TRIMETHOPRIM
Strength: 100MG
Dosage Form/Route: TABLET;ORAL
Application: N017952 | Product #001
Applicant: HOFFMANN LA ROCHE INC
Approved: Approved Prior to Jan 1, 1982 | RLD: No | RS: No | Type: DISCN